FAERS Safety Report 7510453-8 (Version None)
Quarter: 2011Q2

REPORT INFORMATION
  Report Type: 
  Country: None (occurrence: None)
  Receive Date: 20110527
  Receipt Date: 20110513
  Transmission Date: 20111010
  Serious: Yes (Hospitalization)
  Sender: FDA-Public Use
  Company Number: FR-CELGENEUS-056-21880-11051822

PATIENT
  Sex: Male
  Weight: 79 kg

DRUGS (8)
  1. ASPIRIN [Concomitant]
     Route: 065
  2. NEXIUM [Concomitant]
     Route: 065
  3. FORLAX [Concomitant]
     Route: 065
  4. ACETAMINOPHEN [Concomitant]
     Route: 065
  5. LEXOMIL [Concomitant]
     Route: 065
  6. REVLIMID [Suspect]
     Indication: DIFFUSE LARGE B-CELL LYMPHOMA
     Dosage: 20 MILLIGRAM
     Route: 048
     Dates: start: 20100616
  7. REVLIMID [Suspect]
     Dosage: 20 MILLIGRAM
     Route: 048
     Dates: start: 20101016, end: 20101124
  8. LOMISIL [Concomitant]
     Route: 065

REACTIONS (1)
  - DEMENTIA WITH LEWY BODIES [None]
